FAERS Safety Report 20738531 (Version 1)
Quarter: 2022Q2

REPORT INFORMATION
  Report Type: Spontaneous
  Country: US (occurrence: None)
  Receive Date: 20220421
  Receipt Date: 20220421
  Transmission Date: 20220721
  Serious: No
  Sender: FDA-Public Use
  Company Number: None

PATIENT
  Age: 69 Year
  Sex: Male
  Weight: 83.46 kg

DRUGS (11)
  1. ABIRATERONE [Suspect]
     Active Substance: ABIRATERONE
     Indication: Prostate cancer
     Dosage: FREQUENCY : DAILY;?
     Route: 048
     Dates: start: 20211231
  2. BICALUTAMIDE ORAL [Concomitant]
  3. NORCO [Concomitant]
  4. FLOMAX [Concomitant]
  5. NEURONTIN [Concomitant]
  6. CALCIUM [Concomitant]
  7. VITAMIN D3 [Concomitant]
  8. ESCITALOPRAM OXALATE ORAL [Concomitant]
  9. VIT B12 [Concomitant]
  10. MIRTAZAPINE [Concomitant]
  11. HYDROXYZINE [Concomitant]

REACTIONS (1)
  - Disease progression [None]
